FAERS Safety Report 8675304 (Version 2)
Quarter: 2013Q4

REPORT INFORMATION
  Report Type: Spontaneous
  Country: US (occurrence: US)
  Receive Date: 20120720
  Receipt Date: 20131101
  Transmission Date: 20140711
  Serious: Yes (Hospitalization, Other)
  Sender: FDA-Public Use
  Company Number: US-009507513-1207USA003959

PATIENT
  Age: 27 Year
  Sex: Male
  Weight: 70 kg

DRUGS (18)
  1. ZEMURON [Suspect]
     Indication: THERAPEUTIC HYPOTHERMIA
     Dosage: 8 MICROGRAM PER KILOGRAM PER MINUTE
  2. PROPOFOL [Concomitant]
     Indication: THERAPEUTIC HYPOTHERMIA
     Dosage: UNK
  3. PROPOFOL [Concomitant]
     Dosage: UNK
  4. PROPOFOL [Concomitant]
     Dosage: UNK
  5. PIPERACILLIN SODIUM (+) TAZOBACTAM SODIUM [Concomitant]
     Dosage: 4.5 G, Q6H
     Route: 042
  6. VANCOMYCIN [Concomitant]
     Dosage: 1 G, Q12H
     Route: 042
  7. FLUCONAZOLE [Concomitant]
     Dosage: 500 MG, QD
     Route: 042
  8. LORAZEPAM [Concomitant]
  9. FENTANYL [Concomitant]
     Route: 042
  10. METHYLPREDNISOLONE [Concomitant]
     Dosage: 40 MG, Q8H
     Route: 042
  11. INSULIN [Concomitant]
     Indication: BLOOD GLUCOSE ABNORMAL
     Dosage: UNK
  12. DILTIAZEM HYDROCHLORIDE [Concomitant]
     Dosage: 5 MILLIGRAM PER HOUR
     Route: 042
  13. FAMOTIDINE [Concomitant]
     Dosage: 20 MG, Q12H
     Route: 042
  14. ENOXAPARIN SODIUM [Concomitant]
     Dosage: 40 MG, QD
     Route: 058
  15. ACETAMINOPHEN [Concomitant]
     Indication: PYREXIA
     Dosage: 650 MG, EVERY 4 HOURS AS NEEDED
  16. EPINEPHRINE [Concomitant]
     Route: 042
  17. ATROPINE [Concomitant]
     Route: 042
  18. INDOMETHACIN [Concomitant]
     Dosage: 50 MG, Q12H AS NEEDED

REACTIONS (1)
  - Hyperthermia malignant [Recovered/Resolved]
